FAERS Safety Report 26076903 (Version 1)
Quarter: 2025Q4

REPORT INFORMATION
  Report Type: Report from Study
  Country: EU (occurrence: EU)
  Receive Date: 20251121
  Receipt Date: 20251121
  Transmission Date: 20260118
  Serious: Yes (Life-Threatening, Other)
  Sender: MYLAN
  Company Number: EU-SA-SAC20220321000920

PATIENT
  Age: 68 Year
  Sex: Female
  Weight: 60 kg

DRUGS (33)
  1. DEXAMETHASONE [Suspect]
     Active Substance: DEXAMETHASONE
     Indication: Plasma cell myeloma refractory
     Dosage: 40 MILLIGRAM, QW
     Dates: start: 20220126, end: 20220223
  2. DEXAMETHASONE [Suspect]
     Active Substance: DEXAMETHASONE
     Dosage: 40 MILLIGRAM, QW
     Dates: start: 20220224, end: 20220322
  3. DEXAMETHASONE [Suspect]
     Active Substance: DEXAMETHASONE
     Dosage: 20 MILLIGRAM, QW
     Dates: start: 20220824, end: 20220910
  4. DEXAMETHASONE [Suspect]
     Active Substance: DEXAMETHASONE
     Dosage: 20 MILLIGRAM, QW
     Dates: start: 20220929, end: 20221027
  5. DEXAMETHASONE [Suspect]
     Active Substance: DEXAMETHASONE
     Dosage: 20 MILLIGRAM, QW
     Dates: start: 20221102, end: 20221129
  6. DEXAMETHASONE [Suspect]
     Active Substance: DEXAMETHASONE
     Dosage: 20 MILLIGRAM, QW
     Dates: start: 20221130, end: 20221207
  7. DEXAMETHASONE [Suspect]
     Active Substance: DEXAMETHASONE
     Dosage: 40 MILLIGRAM, QW
     Dates: start: 20220323, end: 20220420
  8. DEXAMETHASONE [Suspect]
     Active Substance: DEXAMETHASONE
     Dosage: 40 MILLIGRAM, QW
     Dates: start: 20220502, end: 20220530
  9. DEXAMETHASONE [Suspect]
     Active Substance: DEXAMETHASONE
     Dosage: 40 MILLIGRAM, QW
     Dates: start: 20220613, end: 20220711
  10. ISATUXIMAB [Suspect]
     Active Substance: ISATUXIMAB
     Indication: Plasma cell myeloma refractory
     Dosage: 600 MILLIGRAM, QW
     Dates: start: 20220126, end: 20220223
  11. ISATUXIMAB [Suspect]
     Active Substance: ISATUXIMAB
     Dosage: 600 MILLIGRAM, BIWEEKLY (1200 MILLIGRAM, QW, 600 MG, BIW (DAY 1, DAY 15))
     Dates: start: 20220224, end: 20220322
  12. ISATUXIMAB [Suspect]
     Active Substance: ISATUXIMAB
     Dosage: 600 MILLIGRAM, BIWEEKLY (QOW)
     Dates: start: 20220323, end: 20220420
  13. ISATUXIMAB [Suspect]
     Active Substance: ISATUXIMAB
     Dosage: 600 MILLIGRAM, BIWEEKLY (QOW)
     Dates: start: 20220502, end: 20220530
  14. ISATUXIMAB [Suspect]
     Active Substance: ISATUXIMAB
     Dosage: 600 MILLIGRAM, BIWEEKLY (QOW)
     Dates: start: 20220824, end: 20220910
  15. ISATUXIMAB [Suspect]
     Active Substance: ISATUXIMAB
     Dosage: 600 MILLIGRAM, BIWEEKLY (QOW)
     Dates: start: 20220929, end: 20221027
  16. ISATUXIMAB [Suspect]
     Active Substance: ISATUXIMAB
     Dosage: 600 MILLIGRAM, BIWEEKLY (QOW)
     Dates: start: 20221102, end: 20221127
  17. ISATUXIMAB [Suspect]
     Active Substance: ISATUXIMAB
     Dosage: 600 MILLIGRAM, BIWEEKLY (QOW)
     Dates: start: 20221130, end: 20221214
  18. POMALIDOMIDE [Suspect]
     Active Substance: POMALIDOMIDE
     Indication: Plasma cell myeloma refractory
     Dosage: 4 MILLIGRAM, QD
     Dates: start: 20220126, end: 20220223
  19. POMALIDOMIDE [Suspect]
     Active Substance: POMALIDOMIDE
     Dosage: 4 MILLIGRAM, QD
     Dates: start: 20220224, end: 20220322
  20. POMALIDOMIDE [Suspect]
     Active Substance: POMALIDOMIDE
     Dosage: 2 MILLIGRAM, QD
     Dates: start: 20220323, end: 20220420
  21. POMALIDOMIDE [Suspect]
     Active Substance: POMALIDOMIDE
     Dosage: 2 MILLIGRAM, QD
     Dates: start: 20220824, end: 20220910
  22. POMALIDOMIDE [Suspect]
     Active Substance: POMALIDOMIDE
     Dosage: 2 MILLIGRAM, QD
     Dates: start: 20220929, end: 20221101
  23. POMALIDOMIDE [Suspect]
     Active Substance: POMALIDOMIDE
     Dosage: 2 MILLIGRAM, QD
     Dates: start: 20221102, end: 20221129
  24. POMALIDOMIDE [Suspect]
     Active Substance: POMALIDOMIDE
     Dosage: 2 MILLIGRAM, QD
     Dates: start: 20221130, end: 20221213
  25. POMALIDOMIDE [Suspect]
     Active Substance: POMALIDOMIDE
     Dosage: 2 MILLIGRAM, QD
     Dates: start: 20220502, end: 20220530
  26. POMALIDOMIDE [Suspect]
     Active Substance: POMALIDOMIDE
     Dosage: 2 MILLIGRAM, QD
     Dates: start: 20220613, end: 20220711
  27. POLYETHYLENE GLYCOLS [Concomitant]
     Active Substance: POLYETHYLENE GLYCOLS
     Dosage: UNK
  28. BACTRIM [Concomitant]
     Active Substance: SULFAMETHOXAZOLE\TRIMETHOPRIM
     Dosage: UNK
  29. Spasfon [Concomitant]
     Dosage: UNK
     Dates: start: 20230215, end: 20230302
  30. VALACYCLOVIR HYDROCHLORIDE [Concomitant]
     Active Substance: VALACYCLOVIR HYDROCHLORIDE
     Dosage: UNK
  31. TRIMEBUTINE MALEATE [Concomitant]
     Active Substance: TRIMEBUTINE MALEATE
     Dosage: UNK
  32. BROMAZEPAM [Concomitant]
     Active Substance: BROMAZEPAM
     Dosage: UNK
  33. PAROXETINE [Concomitant]
     Active Substance: PAROXETINE
     Dosage: UNK

REACTIONS (4)
  - Neutropenia [Recovered/Resolved]
  - Insomnia [Recovered/Resolved]
  - Muscle spasms [Recovered/Resolved]
  - Sinusitis [Recovered/Resolved with Sequelae]

NARRATIVE: CASE EVENT DATE: 20220309
